FAERS Safety Report 8091054-2 (Version None)
Quarter: 2012Q1

REPORT INFORMATION
  Report Type: 
  Country: None (occurrence: None)
  Receive Date: 20120131
  Receipt Date: 20120120
  Transmission Date: 20120608
  Serious: Yes (Congenital Anomaly)
  Sender: FDA-Public Use
  Company Number: GB-SANOFI-AVENTIS-2011SA074652

PATIENT
  Sex: Male
  Weight: 2.12 kg

DRUGS (1)
  1. APIDRA [Suspect]
     Route: 064

REACTIONS (5)
  - FOETAL EXPOSURE DURING PREGNANCY [None]
  - TRISOMY 21 [None]
  - PLEURAL EFFUSION [None]
  - CARDIAC SEPTAL DEFECT [None]
  - INFERIOR VENA CAVA DILATATION [None]
